FAERS Safety Report 11841545 (Version 1)
Quarter: 2015Q4

REPORT INFORMATION
  Report Type: Spontaneous
  Country: US (occurrence: US)
  Receive Date: 20151216
  Receipt Date: 20151216
  Transmission Date: 20160305
  Serious: Yes (Other)
  Sender: FDA-Public Use
  Company Number: US-MYLANLABS-2015M1044763

PATIENT

DRUGS (3)
  1. FLUTICASONE PROPIONATE W/SALMETEROL [Suspect]
     Active Substance: FLUTICASONE PROPIONATE\SALMETEROL XINAFOATE
     Indication: ASTHMA
     Dosage: 50 MCG SALMETEROL AND 500 MCG FLUTICASONE ONE PUFF TWICE A DAY
     Route: 055
  2. NEFAZODONE [Suspect]
     Active Substance: NEFAZODONE
     Indication: ASTHMA
     Route: 055
  3. PREDNISONE. [Suspect]
     Active Substance: PREDNISONE
     Indication: ASTHMA
     Route: 048

REACTIONS (2)
  - Adrenal suppression [Recovering/Resolving]
  - Hypogammaglobulinaemia [Recovering/Resolving]
